FAERS Safety Report 24020212 (Version 1)
Quarter: 2024Q2

REPORT INFORMATION
  Report Type: Spontaneous
  Country: CH (occurrence: CH)
  Receive Date: 20240627
  Receipt Date: 20240627
  Transmission Date: 20240716
  Serious: Yes (Hospitalization, Other)
  Sender: FDA-Public Use
  Company Number: CH-ANIPHARMA-2024-CH-000018

PATIENT
  Age: 75 Year
  Sex: Male

DRUGS (8)
  1. CASODEX [Suspect]
     Active Substance: BICALUTAMIDE
     Indication: Product used for unknown indication
     Dosage: 50 MG DAILY
     Route: 048
     Dates: start: 20231107
  2. GOSERELIN [Suspect]
     Active Substance: GOSERELIN
     Dosage: 1 DOSAGE FORM EVERY 3 MONTH(S) S.C. EVERY 3 MONTHS, FIRST 10.08.2023 (ABROAD), 10.11.2023, THEN 23.0
     Route: 058
     Dates: start: 20230810
  3. DOCETAXEL [Suspect]
     Active Substance: DOCETAXEL\DOCETAXEL ANHYDROUS
     Dosage: (50 MG/M2 Q2W) 91 MG,91 MILLIGRAM EVERY 2 WEEK(S)DOCETAXEL FRESENIUS (50MG/M2 Q2W) 91 MG I.V. EVERY
     Route: 042
     Dates: start: 20240223
  4. NUBEQA [Suspect]
     Active Substance: DAROLUTAMIDE
     Dosage: 600 MILLIGRAM EVERY 12 HOUR
     Route: 048
     Dates: start: 20231221
  5. DENOSUMAB [Suspect]
     Active Substance: DENOSUMAB
     Dosage: DOSAGE FORM EVERY 4 WEEK(A)
     Route: 058
     Dates: start: 20240321
  6. ENALAPRIL [Suspect]
     Active Substance: ENALAPRIL
     Dosage: 20 MILLIGRAM EVERY 1 DAY(S)
     Route: 048
  7. TAMSULOSIN HYDROCHLORIDE [Suspect]
     Active Substance: TAMSULOSIN HYDROCHLORIDE
     Dosage: 0.4 MILLIGRAM EVERY 1 DAY(S)
     Route: 048
  8. PANTOZOL [Suspect]
     Active Substance: PANTOPRAZOLE SODIUM
     Dosage: 40 MILLIGRAM EVERY 1 DAY(S)
     Route: 048

REACTIONS (2)
  - Lupus-like syndrome [Recovering/Resolving]
  - Basal cell carcinoma [Unknown]

NARRATIVE: CASE EVENT DATE: 20240101
